FAERS Safety Report 25670294 (Version 3)
Quarter: 2025Q3

REPORT INFORMATION
  Report Type: Spontaneous
  Country: US (occurrence: US)
  Receive Date: 20250812
  Receipt Date: 20250929
  Transmission Date: 20251021
  Serious: Yes (Other)
  Sender: CSL BEHRING
  Company Number: US-BEH-2025215395

PATIENT
  Age: 44 Year
  Sex: Female

DRUGS (4)
  1. HIZENTRA [Suspect]
     Active Substance: HUMAN IMMUNOGLOBULIN G
     Indication: Polyneuropathy
     Dosage: 18 G, QW
     Route: 058
     Dates: start: 202502
  2. HIZENTRA [Suspect]
     Active Substance: HUMAN IMMUNOGLOBULIN G
     Dosage: 18 G, QW
     Route: 058
     Dates: start: 20250602
  3. NORTHERA [Concomitant]
     Active Substance: DROXIDOPA
  4. FAMOTIDINE [Concomitant]
     Active Substance: FAMOTIDINE

REACTIONS (6)
  - Thrombosis [Unknown]
  - Thrombosis in device [Unknown]
  - Impaired gastric emptying [Unknown]
  - Impaired healing [Unknown]
  - Scar [Unknown]
  - Off label use [Unknown]

NARRATIVE: CASE EVENT DATE: 20250101
